FAERS Safety Report 6499861-4 (Version None)
Quarter: 2009Q4

REPORT INFORMATION
  Report Type: 
  Country: None (occurrence: None)
  Receive Date: 20091214
  Receipt Date: 20091214
  Transmission Date: 20100525
  Serious: Yes (Other)
  Sender: FDA-Public Use
  Company Number: None

PATIENT
  Age: 36 Year
  Sex: Female
  Weight: 117.9352 kg

DRUGS (1)
  1. CYMBALTA [Suspect]
     Indication: DEPRESSION
     Dosage: 1 CAPSULE DAILY PO
     Route: 048
     Dates: start: 20070601, end: 20070701

REACTIONS (2)
  - BLOOD PRESSURE ABNORMAL [None]
  - FEELING ABNORMAL [None]
